FAERS Safety Report 11051907 (Version 1)
Quarter: 2015Q2

REPORT INFORMATION
  Report Type: Report from Study
  Country: NL (occurrence: NL)
  Receive Date: 20150421
  Receipt Date: 20150421
  Transmission Date: 20150821
  Serious: Yes (Death, Other)
  Sender: FDA-Public Use
  Company Number: NL-CELGENE-114-21880-14070764

PATIENT
  Age: 79 Year
  Sex: Male
  Weight: 82 kg

DRUGS (4)
  1. REVLIMID [Suspect]
     Active Substance: LENALIDOMIDE
     Route: 048
     Dates: start: 20140721
  2. REVLIMID [Suspect]
     Active Substance: LENALIDOMIDE
     Route: 048
     Dates: start: 20140721, end: 20150210
  3. REVLIMID [Suspect]
     Active Substance: LENALIDOMIDE
     Indication: PLASMA CELL MYELOMA
     Route: 048
     Dates: start: 20100817, end: 20140617
  4. REVLIMID [Suspect]
     Active Substance: LENALIDOMIDE
     Dosage: 16 MILLIGRAM
     Route: 048
     Dates: start: 20091209

REACTIONS (2)
  - Prostate cancer stage IV [Fatal]
  - Renal impairment [Unknown]

NARRATIVE: CASE EVENT DATE: 20140626
